FAERS Safety Report 6077355-8 (Version None)
Quarter: 2009Q1

REPORT INFORMATION
  Report Type: 
  Country: None (occurrence: None)
  Receive Date: 20090213
  Receipt Date: 20090206
  Transmission Date: 20090719
  Serious: Yes (Hospitalization)
  Sender: FDA-Public Use
  Company Number: Z0000683A

PATIENT
  Age: 68 Year
  Sex: Male
  Weight: 113.3 kg

DRUGS (2)
  1. TOPOTECAN [Suspect]
     Dosage: 5MG CYCLIC
     Route: 048
     Dates: start: 20090109
  2. BEVACIZUMAB [Suspect]
     Dosage: 1704MG CYCLIC
     Route: 042
     Dates: start: 20090109

REACTIONS (2)
  - ACUTE RESPIRATORY FAILURE [None]
  - BRONCHITIS [None]
